FAERS Safety Report 5440924-X (Version None)
Quarter: 2007Q3

REPORT INFORMATION
  Report Type: 
  Country: None (occurrence: None)
  Receive Date: 20070831
  Receipt Date: 20070824
  Transmission Date: 20080115
  Serious: Yes (Other)
  Sender: FDA-Public Use
  Company Number: US-PFIZER INC-2006089653

PATIENT
  Sex: Male

DRUGS (4)
  1. LIPITOR [Suspect]
  2. LISINOPRIL AND HYDROCHLOROTHIAZIDE [Concomitant]
  3. TOPROL-XL [Concomitant]
  4. CARDIZEM [Concomitant]

REACTIONS (7)
  - AMNESIA [None]
  - BALANCE DISORDER [None]
  - CONFUSIONAL STATE [None]
  - DEPRESSION [None]
  - FATIGUE [None]
  - IRRITABILITY [None]
  - NEUROPATHY PERIPHERAL [None]
